FAERS Safety Report 10567700 (Version 1)
Quarter: 2014Q4

REPORT INFORMATION
  Report Type: Spontaneous
  Country: US (occurrence: None)
  Receive Date: 20141105
  Receipt Date: 20141105
  Transmission Date: 20150529
  Serious: Yes (Disabling)
  Sender: FDA-Public Use
  Company Number: None

PATIENT
  Age: 60 Year
  Sex: Male
  Weight: 99.79 kg

DRUGS (1)
  1. ESCITALOPRAM 10MG TEVA [Suspect]
     Active Substance: ESCITALOPRAM OXALATE
     Indication: DEPRESSION
     Route: 048
     Dates: start: 20130916, end: 20141104

REACTIONS (5)
  - Hypersomnia [None]
  - Crying [None]
  - Product substitution issue [None]
  - Living alone [None]
  - Drug ineffective [None]

NARRATIVE: CASE EVENT DATE: 20131002
